FAERS Safety Report 4535270-2 (Version None)
Quarter: 2004Q4

REPORT INFORMATION
  Report Type: 
  Country: None (occurrence: None)
  Receive Date: 20041214
  Receipt Date: 20041103
  Transmission Date: 20050328
  Serious: Yes (Other)
  Sender: FDA-Public Use
  Company Number: 2004089441

PATIENT
  Sex: Female
  Weight: 77.1115 kg

DRUGS (6)
  1. BEXTRA [Suspect]
     Indication: BACK PAIN
     Dates: end: 20030101
  2. BUPROPION HYDROCHLORIDE [Concomitant]
  3. CLONAZEPAM [Concomitant]
  4. LEVOTHYROXINE SODIUM [Concomitant]
  5. ATENOLOL [Concomitant]
  6. ROSUVASTATIN (ROSUVASTATIN) [Concomitant]

REACTIONS (6)
  - ABDOMINAL PAIN [None]
  - ARTHRITIS [None]
  - BACK PAIN [None]
  - DIARRHOEA [None]
  - FALL [None]
  - INTERVERTEBRAL DISC DISORDER [None]
